FAERS Safety Report 13533460 (Version 3)
Quarter: 2017Q2

REPORT INFORMATION
  Report Type: Report from Study
  Country: BR (occurrence: BR)
  Receive Date: 20170510
  Receipt Date: 20170609
  Transmission Date: 20170830
  Serious: Yes (Congenital Anomaly, Other)
  Sender: FDA-Public Use
  Company Number: BR-BRISTOL-MYERS SQUIBB COMPANY-BMS-2017-029622

PATIENT
  Sex: Male
  Weight: 2.8 kg

DRUGS (2)
  1. EFAVIRENZ [Suspect]
     Active Substance: EFAVIRENZ
     Indication: PRODUCT USED FOR UNKNOWN INDICATION
     Dosage: 600 MG, QD
     Route: 064
     Dates: start: 20161021, end: 20170205
  2. COMBIVIR [Suspect]
     Active Substance: LAMIVUDINE\ZIDOVUDINE
     Indication: PRODUCT USED FOR UNKNOWN INDICATION
     Dosage: 900 MG, QD
     Route: 064
     Dates: start: 20161021, end: 20170206

REACTIONS (4)
  - Strabismus congenital [Unknown]
  - Ankyloglossia congenital [Unknown]
  - Foetal exposure during pregnancy [Unknown]
  - Foetal distress syndrome [Unknown]

NARRATIVE: CASE EVENT DATE: 20170206
